FAERS Safety Report 22302602 (Version 1)
Quarter: 2023Q2

REPORT INFORMATION
  Report Type: Report from Study
  Country: CA (occurrence: CA)
  Receive Date: 20230510
  Receipt Date: 20230510
  Transmission Date: 20230721
  Serious: Yes (Other)
  Sender: FDA-Public Use
  Company Number: CA-JNJFOC-20230515416

PATIENT
  Age: 16 Year
  Sex: Female

DRUGS (1)
  1. REMICADE [Suspect]
     Active Substance: INFLIXIMAB
     Indication: Product used for unknown indication
     Route: 042

REACTIONS (5)
  - Haematochezia [Unknown]
  - Facial pain [Unknown]
  - Jaundice [Unknown]
  - Abdominal pain lower [Unknown]
  - Fatigue [Unknown]

NARRATIVE: CASE EVENT DATE: 20230401
